FAERS Safety Report 5593193-4 (Version None)
Quarter: 2008Q1

REPORT INFORMATION
  Report Type: 
  Country: None (occurrence: None)
  Receive Date: 20080114
  Receipt Date: 20080104
  Transmission Date: 20080703
  Serious: Yes (Life-Threatening, Hospitalization)
  Sender: FDA-Public Use
  Company Number: GXKR2008DE00522

PATIENT
  Age: 27 Year
  Sex: Male

DRUGS (1)
  1. ZOLPIDEM [Suspect]
     Indication: INSOMNIA
     Dosage: UP TO 800 MG, QD, ORAL, 300 MG, ORAL
     Route: 048

REACTIONS (11)
  - AGITATION [None]
  - COMPRESSION FRACTURE [None]
  - DRUG DEPENDENCE [None]
  - DRUG WITHDRAWAL CONVULSIONS [None]
  - DRUG WITHDRAWAL SYNDROME [None]
  - FALL [None]
  - HYPERHIDROSIS [None]
  - INTENTIONAL DRUG MISUSE [None]
  - PARAPLEGIA [None]
  - SENSORY LEVEL ABNORMAL [None]
  - SPINAL FRACTURE [None]
